FAERS Safety Report 7326089-8 (Version None)
Quarter: 2011Q1

REPORT INFORMATION
  Report Type: 
  Country: None (occurrence: None)
  Receive Date: 20110302
  Receipt Date: 20110222
  Transmission Date: 20110831
  Serious: Yes (Death, Hospitalization)
  Sender: FDA-Public Use
  Company Number: GB-ROCHE-759433

PATIENT
  Sex: Male

DRUGS (2)
  1. XELODA [Suspect]
     Indication: COLORECTAL CANCER
     Route: 048
  2. OXALIPLATIN [Suspect]
     Indication: COLORECTAL CANCER
     Route: 041

REACTIONS (1)
  - DIARRHOEA [None]
